FAERS Safety Report 7529167-3 (Version None)
Quarter: 2011Q2

REPORT INFORMATION
  Report Type: 
  Country: None (occurrence: None)
  Receive Date: 20110607
  Receipt Date: 20110530
  Transmission Date: 20111010
  Serious: Yes (Life-Threatening)
  Sender: FDA-Public Use
  Company Number: JP-ASTRAZENECA-2011SE34165

PATIENT
  Age: 44 Year
  Sex: Male

DRUGS (4)
  1. ZOSYN [Suspect]
     Route: 042
  2. FLUCONAZOLE [Suspect]
     Route: 042
  3. MEROPENEM [Suspect]
     Indication: PNEUMONIA
     Route: 042
     Dates: start: 20110501
  4. PASIL [Suspect]
     Route: 065

REACTIONS (2)
  - LIVER DISORDER [None]
  - RENAL FAILURE ACUTE [None]
